FAERS Safety Report 16214373 (Version 4)
Quarter: 2019Q4

REPORT INFORMATION
  Report Type: Spontaneous
  Country: US (occurrence: US)
  Receive Date: 20190418
  Receipt Date: 20191014
  Transmission Date: 20200122
  Serious: Yes (Hospitalization, Other)
  Sender: FDA-Public Use
  Company Number: US-ASTRAZENECA-2019SE55646

PATIENT
  Age: 64 Year
  Sex: Female
  Weight: 86.2 kg

DRUGS (42)
  1. DOXYCYCLINE. [Concomitant]
     Active Substance: DOXYCYCLINE
  2. HYDRALAZINE [Concomitant]
     Active Substance: HYDRALAZINE HYDROCHLORIDE
  3. AMOXICILLINE [Concomitant]
     Active Substance: AMOXICILLIN
  4. CILOSTAZOL. [Concomitant]
     Active Substance: CILOSTAZOL
  5. VASCEPA [Concomitant]
     Active Substance: ICOSAPENT ETHYL
  6. PRILOSEC [Suspect]
     Active Substance: OMEPRAZOLE MAGNESIUM
     Route: 048
     Dates: start: 2008, end: 2015
  7. PRILOSEC [Suspect]
     Active Substance: OMEPRAZOLE MAGNESIUM
     Route: 048
     Dates: start: 20121009
  8. ATORVASTATIN [Concomitant]
     Active Substance: ATORVASTATIN
  9. ALLOPURINOL. [Concomitant]
     Active Substance: ALLOPURINOL
  10. PRILOSEC [Suspect]
     Active Substance: OMEPRAZOLE MAGNESIUM
     Dosage: GENERIC
     Route: 065
     Dates: start: 20130924
  11. PRAVASTATIN. [Concomitant]
     Active Substance: PRAVASTATIN
  12. EZETIMIBE. [Concomitant]
     Active Substance: EZETIMIBE
  13. PRILOSEC [Suspect]
     Active Substance: OMEPRAZOLE MAGNESIUM
     Route: 048
     Dates: start: 20140915
  14. PRILOSEC [Suspect]
     Active Substance: OMEPRAZOLE MAGNESIUM
     Route: 048
     Dates: start: 20150501
  15. AZITHROMYCIN ANHYDROUS. [Concomitant]
     Active Substance: AZITHROMYCIN ANHYDROUS
  16. SIMVASTATIN. [Concomitant]
     Active Substance: SIMVASTATIN
  17. FUROSEMIDE. [Concomitant]
     Active Substance: FUROSEMIDE
  18. TORSEMIDE. [Concomitant]
     Active Substance: TORSEMIDE
  19. COLESTIPOL [Concomitant]
     Active Substance: COLESTIPOL
  20. DOXYCYCLINE. [Concomitant]
     Active Substance: DOXYCYCLINE
  21. PRILOSEC [Suspect]
     Active Substance: OMEPRAZOLE MAGNESIUM
     Route: 048
     Dates: start: 2007, end: 20150317
  22. PROTONIX [Suspect]
     Active Substance: PANTOPRAZOLE SODIUM
     Route: 065
     Dates: start: 201505, end: 201804
  23. CARVEDILOL/COREG [Concomitant]
  24. VYTORIN [Concomitant]
     Active Substance: EZETIMIBE\SIMVASTATIN
  25. NIZATIDINE. [Concomitant]
     Active Substance: NIZATIDINE
  26. DEXILANT [Suspect]
     Active Substance: DEXLANSOPRAZOLE
     Route: 065
     Dates: start: 20170217, end: 20170402
  27. CLOPIDOGREL [Concomitant]
     Active Substance: CLOPIDOGREL BISULFATE
  28. ECOTRIN [Concomitant]
     Active Substance: ASPIRIN
  29. ZOFRAN [Concomitant]
     Active Substance: ONDANSETRON HYDROCHLORIDE
  30. ELIQUIS [Concomitant]
     Active Substance: APIXABAN
  31. CHOLESTYRAMINE. [Concomitant]
     Active Substance: CHOLESTYRAMINE
  32. PRILOSEC OTC [Suspect]
     Active Substance: OMEPRAZOLE MAGNESIUM
     Route: 048
  33. PROTONIX [Suspect]
     Active Substance: PANTOPRAZOLE SODIUM
     Dosage: GENERIC
     Route: 065
     Dates: start: 20150606
  34. SULFAMETHOXAZOLE [Concomitant]
     Active Substance: SULFAMETHOXAZOLE
  35. COLESTIPOL [Concomitant]
     Active Substance: COLESTIPOL
  36. FENOFIBRATE. [Concomitant]
     Active Substance: FENOFIBRATE
  37. CALCITRIOL. [Concomitant]
     Active Substance: CALCITRIOL
  38. CARVEDILOL. [Concomitant]
     Active Substance: CARVEDILOL
  39. HYZAAR [Concomitant]
     Active Substance: HYDROCHLOROTHIAZIDE\LOSARTAN POTASSIUM
  40. LOSARTAN. [Concomitant]
     Active Substance: LOSARTAN
  41. AMLODIPINE [Concomitant]
     Active Substance: AMLODIPINE BESYLATE
  42. ZETIA [Concomitant]
     Active Substance: EZETIMIBE

REACTIONS (6)
  - Hyperparathyroidism secondary [Unknown]
  - Renal impairment [Unknown]
  - Nephrogenic anaemia [Unknown]
  - Chronic kidney disease [Not Recovered/Not Resolved]
  - Acute kidney injury [Not Recovered/Not Resolved]
  - Renal failure [Not Recovered/Not Resolved]

NARRATIVE: CASE EVENT DATE: 2017
